FAERS Safety Report 6170248-7 (Version None)
Quarter: 2009Q2

REPORT INFORMATION
  Report Type: 
  Country: None (occurrence: None)
  Receive Date: 20090428
  Receipt Date: 20090417
  Transmission Date: 20091009
  Serious: Yes (Life-Threatening, Other)
  Sender: FDA-Public Use
  Company Number: JP-PFIZER INC-2009184683

PATIENT

DRUGS (2)
  1. CHAMPIX [Suspect]
     Indication: SMOKING CESSATION THERAPY
     Dosage: 1 MG, 1X/DAY
     Route: 048
     Dates: start: 20090211, end: 20090218
  2. LEXOTAN [Suspect]
     Indication: PSYCHOSOMATIC DISEASE
     Dosage: 5 MG, 2X/DAY
     Route: 048
     Dates: start: 20010502

REACTIONS (4)
  - ABDOMINAL DISTENSION [None]
  - FACE OEDEMA [None]
  - HOT FLUSH [None]
  - URINARY RETENTION [None]
